FAERS Safety Report 8857885 (Version 1)
Quarter: 2012Q4

REPORT INFORMATION
  Report Type: 
  Country: US (occurrence: US)
  Receive Date: 20121024
  Receipt Date: 20121024
  Transmission Date: 20130627
  Serious: No
  Sender: FDA-Public Use
  Company Number: US-AMGEN-USASP2012001674

PATIENT
  Sex: Female

DRUGS (3)
  1. ENBREL [Suspect]
     Indication: RHEUMATOID ARTHRITIS
     Dosage: 50 mg, qwk
     Dates: start: 201110
  2. ENBREL [Suspect]
     Dates: start: 201110
  3. TRAMADOL [Concomitant]

REACTIONS (3)
  - Oedema peripheral [Unknown]
  - Pain in extremity [Unknown]
  - Drug ineffective [Unknown]
